FAERS Safety Report 5164322-1 (Version None)
Quarter: 2006Q4

REPORT INFORMATION
  Report Type: 
  Country: None (occurrence: None)
  Receive Date: 20061127
  Receipt Date: 20061127
  Transmission Date: 20070319
  Serious: Yes (Hospitalization)
  Sender: FDA-Public Use
  Company Number: None

PATIENT
  Age: 66 Year
  Sex: Male
  Weight: 68.2 kg

DRUGS (16)
  1. OXALIPLATIN [Suspect]
     Indication: OESOPHAGEAL CARCINOMA
     Dosage: 125 MG Q 7 DAYS IV
     Route: 042
     Dates: start: 20061106, end: 20061113
  2. CAPECITABINE [Suspect]
     Indication: OESOPHAGEAL CARCINOMA
     Dosage: 1800 MG BID PO
     Route: 048
     Dates: start: 20061106, end: 20061119
  3. TOPROL-XL [Concomitant]
  4. LISINOPRIL [Concomitant]
  5. SUCRALFATE [Concomitant]
  6. NEXIUM [Concomitant]
  7. LIPITOR [Concomitant]
  8. PLAVIX [Concomitant]
  9. COLACE [Concomitant]
  10. COMPAZINE [Concomitant]
  11. ZOFRAN [Concomitant]
  12. OXALIPLATIN [Concomitant]
  13. ATIVAN [Concomitant]
  14. IMODIUM [Concomitant]
  15. COUMADIN [Concomitant]
  16. LOVENOX [Concomitant]

REACTIONS (8)
  - ANOREXIA [None]
  - ATRIAL FLUTTER [None]
  - DEHYDRATION [None]
  - DIARRHOEA [None]
  - DYSPHAGIA [None]
  - NAUSEA [None]
  - TACHYCARDIA [None]
  - VOMITING [None]
